FAERS Safety Report 7834216-9 (Version None)
Quarter: 2011Q4

REPORT INFORMATION
  Report Type: 
  Country: None (occurrence: None)
  Receive Date: 20111024
  Receipt Date: 20111017
  Transmission Date: 20120403
  Serious: Yes (Other)
  Sender: FDA-Public Use
  Company Number: PHHY2010AU76394

PATIENT
  Sex: Female

DRUGS (2)
  1. ZOLEDRONOC ACID [Suspect]
     Dosage: UNK UKN, UNK
     Route: 042
     Dates: start: 20101001
  2. DICLOFENAC SODIUM [Concomitant]
     Indication: PAIN
     Dosage: UNK UKN, UNK
     Dates: start: 20101001

REACTIONS (15)
  - NAUSEA [None]
  - INFLAMMATION [None]
  - ARTHRALGIA [None]
  - DYSKINESIA [None]
  - JOINT SWELLING [None]
  - ARTHRITIS [None]
  - MUSCULAR WEAKNESS [None]
  - PAIN IN EXTREMITY [None]
  - PYREXIA [None]
  - GOUT [None]
  - OEDEMA PERIPHERAL [None]
  - NERVE INJURY [None]
  - ARTHROPATHY [None]
  - PAIN [None]
  - MALAISE [None]
